FAERS Safety Report 8026957-8 (Version None)
Quarter: 2011Q4

REPORT INFORMATION
  Report Type: 
  Country: None (occurrence: None)
  Receive Date: 20111130
  Receipt Date: 20110531
  Transmission Date: 20120403
  Serious: Yes (Other)
  Sender: FDA-Public Use
  Company Number: US201007007863

PATIENT
  Sex: Female
  Weight: 93.4 kg

DRUGS (10)
  1. CELEXA [Concomitant]
  2. GEODON [Concomitant]
  3. LEXAPRO [Concomitant]
  4. ZETIA [Concomitant]
  5. TRICOR [Concomitant]
  6. METFORMIN HCL [Concomitant]
  7. LISINOPRIL [Concomitant]
  8. BYETTA [Suspect]
     Dosage: 5 UG, BID
     Dates: start: 20070802, end: 20091102
  9. SIMVASTATIN [Concomitant]
  10. PLENDIL [Concomitant]

REACTIONS (2)
  - RENAL FAILURE [None]
  - PANCREATITIS [None]
